FAERS Safety Report 11743479 (Version 2)
Quarter: 2015Q4

REPORT INFORMATION
  Report Type: Report from Study
  Country: US (occurrence: US)
  Receive Date: 20151116
  Receipt Date: 20151221
  Transmission Date: 20160304
  Serious: Yes (Hospitalization, Other)
  Sender: FDA-Public Use
  Company Number: US-BRISTOL-MYERS SQUIBB COMPANY-BMS-2015-076775

PATIENT
  Age: 79 Year
  Sex: Male
  Weight: 96.2 kg

DRUGS (1)
  1. NIVOLUMAB [Suspect]
     Active Substance: NIVOLUMAB
     Indication: PROSTATE CANCER
     Dosage: 288.6 MG, UNK
     Route: 042
     Dates: start: 20151014

REACTIONS (1)
  - Pneumonia [Recovered/Resolved]

NARRATIVE: CASE EVENT DATE: 20151028
